FAERS Safety Report 5356178-9 (Version None)
Quarter: 2007Q2

REPORT INFORMATION
  Report Type: 
  Country: None (occurrence: None)
  Receive Date: 20070612
  Receipt Date: 20070531
  Transmission Date: 20071010
  Serious: Yes (Other)
  Sender: FDA-Public Use
  Company Number: BR-PFIZER INC-2007046321

PATIENT
  Sex: Male
  Weight: 76 kg

DRUGS (1)
  1. ZOLOFT [Suspect]
     Indication: IMPULSIVE BEHAVIOUR
     Route: 048
     Dates: start: 20070528, end: 20070530

REACTIONS (7)
  - CHEST PAIN [None]
  - DRY MOUTH [None]
  - HEAD INJURY [None]
  - MEMORY IMPAIRMENT [None]
  - NIGHTMARE [None]
  - SLEEP DISORDER [None]
  - SUFFOCATION FEELING [None]
